FAERS Safety Report 6011747-8 (Version None)
Quarter: 2008Q4

REPORT INFORMATION
  Report Type: 
  Country: None (occurrence: None)
  Receive Date: 20081218
  Receipt Date: 20080211
  Transmission Date: 20090506
  Serious: No
  Sender: FDA-Public Use
  Company Number: US-ABBOTT-08P-163-0437949-00

PATIENT
  Sex: Female

DRUGS (6)
  1. MERIDIA [Suspect]
     Indication: WEIGHT CONTROL
     Route: 048
     Dates: start: 20080208, end: 20080209
  2. TYLOX [Concomitant]
     Indication: BACK PAIN
     Route: 048
     Dates: start: 20030101
  3. TYLOX [Concomitant]
     Indication: ARTHRALGIA
  4. TYLOX [Concomitant]
  5. ESOMEPRAZOLE MAGNESIUM [Concomitant]
     Indication: ULCER
     Route: 048
     Dates: start: 20050101
  6. PROMETHAZINE [Concomitant]
     Indication: NAUSEA
     Route: 048
     Dates: start: 19880101

REACTIONS (7)
  - CONSTIPATION [None]
  - DISORIENTATION [None]
  - DIZZINESS [None]
  - EXTRASYSTOLES [None]
  - MIGRAINE [None]
  - PALPITATIONS [None]
  - VISION BLURRED [None]
